FAERS Safety Report 10989585 (Version 1)
Quarter: 2015Q1

REPORT INFORMATION
  Report Type: Spontaneous
  Country: US (occurrence: None)
  Receive Date: 20150326
  Receipt Date: 20150326
  Transmission Date: 20150721
  Serious: No
  Sender: FDA-Public Use
  Company Number: 1000073881

PATIENT
  Age: 81 Year
  Sex: Male

DRUGS (2)
  1. MIRALAX (POLYETHYLENE GLYCOL) [Concomitant]
  2. LINZESS [Suspect]
     Active Substance: LINACLOTIDE
     Dates: start: 20140929

REACTIONS (2)
  - Drug ineffective [None]
  - Intentional product misuse [None]

NARRATIVE: CASE EVENT DATE: 20140929
